FAERS Safety Report 13612166 (Version 2)
Quarter: 2019Q3

REPORT INFORMATION
  Report Type: Spontaneous
  Country: CA (occurrence: CA)
  Receive Date: 20170605
  Receipt Date: 20190923
  Transmission Date: 20191004
  Serious: Yes (Other)
  Sender: FDA-Public Use
  Company Number: CA-TEVA-775521ACC

PATIENT
  Age: 71 Year
  Sex: Male
  Weight: 86.71 kg

DRUGS (17)
  1. DOM-RAMIPRIL [Concomitant]
  2. LODALIS [Concomitant]
     Active Substance: COLESEVELAM HYDROCHLORIDE
  3. BIOHYDROCHLOROTHIAZIDE [Concomitant]
  4. VOLTAREN EMULGEL [Concomitant]
     Active Substance: DICLOFENAC DIETHYLAMINE
  5. EZETIMIBE. [Concomitant]
     Active Substance: EZETIMIBE
  6. COMBIGAN [Concomitant]
     Active Substance: BRIMONIDINE TARTRATE\TIMOLOL MALEATE
  7. DOM-METFORMIN [Concomitant]
  8. DOM-ROSUVASTATIN [Concomitant]
  9. ACETAMINOPHENE 500MG COMPRIME [Concomitant]
  10. APO-BISOPROLOL [Concomitant]
     Active Substance: BISOPROLOL FUMARATE
  11. NOVAMOXIN [Concomitant]
     Active Substance: AMOXICILLIN
  12. APO-LATANOPROST [Concomitant]
     Active Substance: LATANOPROST
  13. ERYTHROMYCINE 250 TAB [Concomitant]
  14. SANDOZ LATANOPROST/TIMOLOL [Concomitant]
  15. METFORMIN [Suspect]
     Active Substance: METFORMIN HYDROCHLORIDE
     Indication: GLUCOSE TOLERANCE IMPAIRED
     Dosage: 1700 MICROGRAM DAILY;
     Route: 048
  16. SANDOZ FLUOROMETHOLONE [Concomitant]
     Active Substance: FLUOROMETHOLONE
  17. TOBRADEX OPHTHALMIC [Concomitant]

REACTIONS (4)
  - Eye pain [Not Recovered/Not Resolved]
  - Headache [Not Recovered/Not Resolved]
  - Glaucoma [Not Recovered/Not Resolved]
  - Abdominal discomfort [Not Recovered/Not Resolved]
